FAERS Safety Report 7635775-1 (Version None)
Quarter: 2011Q3

REPORT INFORMATION
  Report Type: 
  Country: None (occurrence: None)
  Receive Date: 20110726
  Receipt Date: 20110715
  Transmission Date: 20111222
  Serious: Yes (Other)
  Sender: FDA-Public Use
  Company Number: US-AMGEN-USASP2011036286

PATIENT
  Age: 64 Year
  Sex: Female

DRUGS (1)
  1. ENBREL [Suspect]
     Indication: RHEUMATOID ARTHRITIS
     Dosage: 50 MG, Q3MO
     Dates: start: 20090101

REACTIONS (9)
  - BALANCE DISORDER [None]
  - MUSCULAR WEAKNESS [None]
  - NAUSEA [None]
  - DYSKINESIA [None]
  - MUSCLE SPASMS [None]
  - BRONCHITIS [None]
  - NECK PAIN [None]
  - CHEST PAIN [None]
  - JOINT RANGE OF MOTION DECREASED [None]
